FAERS Safety Report 6172154-0 (Version None)
Quarter: 2009Q2

REPORT INFORMATION
  Report Type: 
  Country: None (occurrence: None)
  Receive Date: 20090429
  Receipt Date: 20080314
  Transmission Date: 20091009
  Serious: No
  Sender: FDA-Public Use
  Company Number: A0716835A

PATIENT
  Sex: Female

DRUGS (1)
  1. ZOFRAN [Suspect]
     Indication: NAUSEA
     Route: 065

REACTIONS (1)
  - CONSTIPATION [None]
